FAERS Safety Report 24136559 (Version 1)
Quarter: 2024Q3

REPORT INFORMATION
  Report Type: Spontaneous
  Country: US (occurrence: US)
  Receive Date: 20240725
  Receipt Date: 20240725
  Transmission Date: 20241016
  Serious: No
  Sender: APPCO PHARMA
  Company Number: US-Appco Pharma LLC-2159590

PATIENT
  Age: 77 Year
  Sex: Female

DRUGS (1)
  1. MODAFINIL [Suspect]
     Active Substance: MODAFINIL
     Indication: Product used for unknown indication
     Route: 065
     Dates: start: 20240701

REACTIONS (4)
  - Product shape issue [Unknown]
  - Somnolence [Not Recovered/Not Resolved]
  - Product use complaint [Unknown]
  - Drug ineffective [Unknown]

NARRATIVE: CASE EVENT DATE: 20240701
